FAERS Safety Report 24565117 (Version 1)
Quarter: 2024Q4

REPORT INFORMATION
  Report Type: Spontaneous
  Country: US (occurrence: None)
  Receive Date: 20241029
  Receipt Date: 20241029
  Transmission Date: 20250115
  Serious: No
  Sender: Public
  Company Number: None

PATIENT
  Age: 68 Year
  Sex: Female
  Weight: 53.07 kg

DRUGS (1)
  1. RINVOQ [Suspect]
     Active Substance: UPADACITINIB
     Indication: Rheumatoid arthritis
     Dosage: FREQUENCY : DAILY;?
     Route: 048
     Dates: start: 202408

REACTIONS (6)
  - Tremor [None]
  - Dizziness [None]
  - Asthenia [None]
  - Blood pressure increased [None]
  - Arthralgia [None]
  - Gait inability [None]
